FAERS Safety Report 8780494 (Version 1)
Quarter: 2012Q4

REPORT INFORMATION
  Report Type: Spontaneous
  Country: US (occurrence: None)
  Receive Date: 20120906
  Receipt Date: 20120906
  Transmission Date: 20130627
  Serious: Yes (Other)
  Sender: FDA-Public Use
  Company Number: None

PATIENT
  Age: 29 Year
  Sex: Female
  Weight: 83.92 kg

DRUGS (5)
  1. GABAPENTIN [Suspect]
     Route: 048
     Dates: start: 20120703, end: 20120716
  2. ALPRAZOLAM [Concomitant]
  3. OXYCODONE [Concomitant]
  4. CLONAZEPAM [Concomitant]
  5. LUPRON DEPOT HRT [Concomitant]

REACTIONS (2)
  - Burns second degree [None]
  - Burns third degree [None]
